FAERS Safety Report 6954789-8 (Version None)
Quarter: 2010Q3

REPORT INFORMATION
  Report Type: 
  Country: None (occurrence: None)
  Receive Date: 20100830
  Receipt Date: 20100825
  Transmission Date: 20110219
  Serious: Yes (Other)
  Sender: FDA-Public Use
  Company Number: US-ASTRAZENECA-2007UW12266

PATIENT
  Age: 46 Year
  Sex: Female
  Weight: 90.7 kg

DRUGS (51)
  1. SEROQUEL [Suspect]
     Indication: BIPOLAR DISORDER
     Dosage: 600 MG DAILY, 25 - 800 MG
     Route: 048
     Dates: start: 19990816
  2. SEROQUEL [Suspect]
     Indication: DEPRESSION
     Dosage: 600 MG DAILY, 25 - 800 MG
     Route: 048
     Dates: start: 19990816
  3. SEROQUEL [Suspect]
     Indication: ANXIETY
     Dosage: 600 MG DAILY, 25 - 800 MG
     Route: 048
     Dates: start: 19990816
  4. SEROQUEL [Suspect]
     Dosage: 100 TO 900 MG
     Route: 048
     Dates: start: 19940101
  5. SEROQUEL [Suspect]
     Dosage: 100 TO 900 MG
     Route: 048
     Dates: start: 19940101
  6. SEROQUEL [Suspect]
     Dosage: 100 TO 900 MG
     Route: 048
     Dates: start: 19940101
  7. SEROQUEL [Suspect]
     Route: 048
     Dates: start: 20040510, end: 20061209
  8. SEROQUEL [Suspect]
     Route: 048
     Dates: start: 20040510, end: 20061209
  9. SEROQUEL [Suspect]
     Route: 048
     Dates: start: 20040510, end: 20061209
  10. HYDROCHLOROTHIAZIDE [Concomitant]
     Indication: HYPERTENSION
     Dates: start: 19980111
  11. HYDROXYZINE PAMOATE [Concomitant]
     Dates: start: 19980111
  12. AMBIEN [Concomitant]
     Dates: start: 19990816
  13. FUROSEMIDE [Concomitant]
     Dosage: 20 - 40 MG
     Dates: start: 19990816
  14. SINGULAIR [Concomitant]
     Indication: ASTHMA
     Dates: start: 19990817
  15. LORATADINE [Concomitant]
     Dates: start: 19990823
  16. TEGRETOL [Concomitant]
     Dosage: 200 - 400 MG
     Dates: start: 19930112
  17. NEURONTIN [Concomitant]
     Indication: NEUROPATHY PERIPHERAL
     Dosage: 300 - 2400 MG
  18. CIMETIDINE HCL [Concomitant]
     Dates: start: 20000925
  19. HALDOL [Concomitant]
     Dosage: 2-6 MG
     Dates: start: 20030219, end: 20060101
  20. OLANZAPINE [Concomitant]
     Dosage: 5 - 10 MG
     Dates: start: 20030103
  21. SIMVASTATIN [Concomitant]
  22. CLONIDINE [Concomitant]
     Indication: HYPERTENSION
     Dosage: 0.1 - 0.2 MG
     Dates: start: 20040327
  23. TRILEPTAL [Concomitant]
  24. VISTARIL [Concomitant]
     Indication: AGITATION
  25. VISTARIL [Concomitant]
     Dates: start: 19890101, end: 20000101
  26. REMERON [Concomitant]
     Indication: DEPRESSION
     Dosage: 15 - 45 MG
     Dates: start: 20040327
  27. REMERON [Concomitant]
     Dates: start: 19990101, end: 20060101
  28. PRILOSEC [Concomitant]
     Dates: start: 20070320
  29. PROTONIX [Concomitant]
     Indication: GASTROOESOPHAGEAL REFLUX DISEASE
     Dates: start: 20051228
  30. PROTONIX [Concomitant]
     Indication: BARRETT'S OESOPHAGUS
     Dates: start: 20051228
  31. ALBUTEROL [Concomitant]
     Indication: ASTHMA
     Dosage: 90 MCG, 2 PUFFS AS REQUIRED
     Route: 055
  32. METHYLPHENIDATE [Concomitant]
  33. ADVAIR DISKUS 100/50 [Concomitant]
     Indication: ASTHMA
     Dosage: 250 - 50 MCG
     Dates: start: 20050603
  34. POTASSIUM CHLORIDE [Concomitant]
     Dosage: 10 - 20 MEQ
     Dates: start: 20010807
  35. ZOCOR [Concomitant]
     Indication: HYPERLIPIDAEMIA
     Dates: start: 20050930
  36. ZOCOR [Concomitant]
     Indication: BLOOD CHOLESTEROL INCREASED
     Dates: start: 20050930
  37. ZOCOR [Concomitant]
     Indication: BLOOD TRIGLYCERIDES INCREASED
     Dates: start: 20050930
  38. METOPROLOL [Concomitant]
     Indication: HYPERTENSION
     Dates: start: 20050725
  39. RISPERDAL [Concomitant]
     Indication: DEPRESSION
     Dosage: 1MG TO 2 MG
     Dates: start: 19970101, end: 19990101
  40. RISPERDAL [Concomitant]
     Indication: ANXIETY
     Dosage: 1MG TO 2 MG
     Dates: start: 19970101, end: 19990101
  41. RISPERDAL [Concomitant]
     Indication: BIPOLAR DISORDER
     Dosage: 1MG TO 2 MG
     Dates: start: 19970101, end: 19990101
  42. STELAZINE [Concomitant]
     Indication: BIPOLAR DISORDER
  43. STELAZINE [Concomitant]
     Indication: DEPRESSION
  44. PAXIL [Concomitant]
     Indication: DEPRESSION
     Dates: start: 20010101, end: 20020101
  45. NAVANE [Concomitant]
     Dosage: 5 TO 10 MG
     Dates: start: 19860101
  46. ZOLOFT [Concomitant]
     Dates: start: 20030101
  47. SERZONE [Concomitant]
     Dates: start: 19970101, end: 19990101
  48. LITHIUM [Concomitant]
     Dates: start: 19860101
  49. EFFEXOR [Concomitant]
     Dates: start: 19950101, end: 19970101
  50. PAMELOR [Concomitant]
     Dates: start: 19910101, end: 19920101
  51. TRILAFON [Concomitant]
     Dates: start: 20060101

REACTIONS (9)
  - ASTHMA [None]
  - BLOOD CHOLESTEROL INCREASED [None]
  - BLOOD TRIGLYCERIDES INCREASED [None]
  - DIABETIC GASTROPARESIS [None]
  - HYPERGLYCAEMIA [None]
  - HYPERLIPIDAEMIA [None]
  - NEUROPATHY PERIPHERAL [None]
  - OBESITY [None]
  - TYPE 2 DIABETES MELLITUS [None]
